FAERS Safety Report 8073953-0 (Version None)
Quarter: 2011Q4

REPORT INFORMATION
  Report Type: 
  Country: None (occurrence: None)
  Receive Date: 20111222
  Receipt Date: 20111003
  Transmission Date: 20120403
  Serious: Yes (Disabling)
  Sender: FDA-Public Use
  Company Number: PHHY2011US19111

PATIENT
  Age: 75 Year
  Sex: Male
  Weight: 181 kg

DRUGS (8)
  1. IBUPROFEN [Concomitant]
  2. EXJADE [Suspect]
     Indication: IRON OVERLOAD
     Dosage: 1500 MG, QD, ORAL, 500 MG, ORAL
     Route: 048
     Dates: start: 20110225
  3. EXJADE [Suspect]
     Indication: TRANSFUSION
     Dosage: 1500 MG, QD, ORAL, 500 MG, ORAL
     Route: 048
     Dates: start: 20110225
  4. LOPERAMIDE [Concomitant]
  5. NEPHRO-VITE (VITAMINS NOS) [Concomitant]
  6. NORCO [Concomitant]
  7. CALCIUM CARBONATE [Concomitant]
  8. ALLOPURINOL [Concomitant]

REACTIONS (4)
  - FATIGUE [None]
  - MALAISE [None]
  - DIARRHOEA [None]
  - ASTHENIA [None]
